FAERS Safety Report 6329205-X (Version None)
Quarter: 2009Q3

REPORT INFORMATION
  Report Type: 
  Country: None (occurrence: None)
  Receive Date: 20090826
  Receipt Date: 20090813
  Transmission Date: 20100115
  Serious: Yes (Disabling)
  Sender: FDA-Public Use
  Company Number: CA-PFIZER INC-2009240866

PATIENT
  Age: 44 Year

DRUGS (7)
  1. CHAMPIX [Suspect]
     Indication: SMOKING CESSATION THERAPY
     Dosage: UNK
     Dates: start: 20090501, end: 20090601
  2. SERAX [Concomitant]
     Indication: SLEEP DISORDER
     Dosage: UNK
     Dates: start: 20090706, end: 20090710
  3. SERAX [Concomitant]
     Indication: GENERAL SYMPTOM
  4. CIPRALEX [Concomitant]
     Indication: SLEEP DISORDER
     Dosage: UNK
     Dates: start: 20090706, end: 20090710
  5. CIPRALEX [Concomitant]
     Indication: GENERAL SYMPTOM
  6. PAXIL [Concomitant]
     Indication: GENERAL SYMPTOM
     Dosage: UNK
  7. IMOVANE [Concomitant]
     Indication: GENERAL SYMPTOM
     Dosage: UNK

REACTIONS (11)
  - AGITATION [None]
  - ANGER [None]
  - DEPRESSED MOOD [None]
  - DEPRESSION [None]
  - INSOMNIA [None]
  - IRRITABILITY [None]
  - LAZINESS [None]
  - MUSCLE TWITCHING [None]
  - RESTLESSNESS [None]
  - SUICIDAL IDEATION [None]
  - VISION BLURRED [None]
